FAERS Safety Report 12259631 (Version 1)
Quarter: 2016Q2

REPORT INFORMATION
  Report Type: Spontaneous
  Country: US (occurrence: US)
  Receive Date: 20160412
  Receipt Date: 20160412
  Transmission Date: 20160815
  Serious: No
  Sender: FDA-Public Use
  Company Number: US-SA-2015SA101885

PATIENT
  Age: 64 Year
  Sex: Female

DRUGS (1)
  1. ALLEGRA [Suspect]
     Active Substance: FEXOFENADINE HYDROCHLORIDE
     Indication: URTICARIA
     Dosage: LOT NUMBER: G OR 6E125?FORM GELCAP
     Route: 065
     Dates: start: 20150704, end: 20150708

REACTIONS (2)
  - Burning sensation [Not Recovered/Not Resolved]
  - Rash [Not Recovered/Not Resolved]
